FAERS Safety Report 5152078-8 (Version None)
Quarter: 2006Q4

REPORT INFORMATION
  Report Type: 
  Country: None (occurrence: None)
  Receive Date: 20061116
  Receipt Date: 20060612
  Transmission Date: 20070319
  Serious: Yes (Hospitalization)
  Sender: FDA-Public Use
  Company Number: DE-BAYER-200610760BVD

PATIENT
  Age: 44 Year
  Sex: Female
  Weight: 68 kg

DRUGS (7)
  1. SORAFENIB [Suspect]
     Indication: RENAL CELL CARCINOMA STAGE UNSPECIFIED
     Dosage: TOTAL DAILY DOSE: 800 MG  UNIT DOSE: 400 MG
     Route: 048
     Dates: start: 20060120
  2. CEFTRIAXON [Concomitant]
     Indication: GASTROENTERITIS
     Route: 042
     Dates: start: 20060530, end: 20060606
  3. METRONIDAZOLE [Concomitant]
     Indication: GASTROENTERITIS
     Route: 042
     Dates: start: 20060530, end: 20060606
  4. METOPROLOL TARTRATE [Concomitant]
     Indication: HYPERTENSION
     Route: 048
     Dates: start: 20060601
  5. FERRO SANOL [Concomitant]
     Indication: ANAEMIA
     Route: 048
     Dates: start: 20060101
  6. TILIDIN [Concomitant]
     Indication: PAIN
     Route: 048
     Dates: start: 20060101
  7. AMITRIPTYLIN [Concomitant]
     Route: 048
     Dates: start: 20060101

REACTIONS (1)
  - EPILEPSY [None]
